FAERS Safety Report 4989411-3 (Version None)
Quarter: 2006Q2

REPORT INFORMATION
  Report Type: 
  Country: None (occurrence: None)
  Receive Date: 20060426
  Receipt Date: 20060418
  Transmission Date: 20061013
  Serious: Yes (Death)
  Sender: FDA-Public Use
  Company Number: 20062809

PATIENT
  Sex: Female

DRUGS (1)
  1. LIORESAL [Suspect]
     Indication: MUSCLE SPASTICITY
     Dosage: 330 MCG, DAILY, INTRATHECAL
     Route: 037

REACTIONS (7)
  - CARDIAC DISORDER [None]
  - HYPOXIC ENCEPHALOPATHY [None]
  - INJURY [None]
  - MITRAL VALVE DISEASE [None]
  - POLYTRAUMATISM [None]
  - ROAD TRAFFIC ACCIDENT [None]
  - THROMBOSIS [None]
